FAERS Safety Report 8722715 (Version 6)
Quarter: 2013Q1

REPORT INFORMATION
  Report Type: Spontaneous
  Country: US (occurrence: US)
  Receive Date: 20120814
  Receipt Date: 20130117
  Transmission Date: 20140127
  Serious: Yes (Hospitalization, Disabling, Other)
  Sender: FDA-Public Use
  Company Number: US-009507513-1208USA005572

PATIENT
  Sex: 0

DRUGS (17)
  1. FOSAMAX [Suspect]
     Indication: OSTEOPOROSIS
     Dosage: UNK UNK, QW
     Route: 048
     Dates: start: 19951001
  2. FOSAMAX [Suspect]
     Indication: OSTEOPENIA
     Dosage: 70 MG, QW
     Route: 048
     Dates: end: 2007
  3. ENALAPRIL MALEATE [Concomitant]
     Indication: HYPERTENSION
     Dosage: UNK
     Dates: start: 1975
  4. HYDROCHLOROTHIAZIDE [Concomitant]
     Indication: HYPERTENSION
     Dosage: UNK
  5. POTASSIUM (UNSPECIFIED) [Concomitant]
  6. VASOTEC [Concomitant]
     Indication: HYPERTENSION
  7. TOPROL XL TABLETS [Concomitant]
     Indication: HYPERTENSION
  8. SYNTHROID [Concomitant]
     Indication: HYPOTHYROIDISM
  9. LEVOXYL [Concomitant]
     Indication: HYPOTHYROIDISM
  10. IMITREX (SUMATRIPTAN) [Concomitant]
     Indication: MIGRAINE
  11. AMBIEN [Concomitant]
     Indication: INSOMNIA
  12. CELEXA [Concomitant]
     Indication: DEPRESSION
  13. CELEXA [Concomitant]
     Indication: ANXIETY
  14. CYMBALTA [Concomitant]
     Indication: DEPRESSION
  15. KLONOPIN [Concomitant]
     Indication: DEPRESSION
  16. KLONOPIN [Concomitant]
     Indication: ANXIETY
  17. CALCIUM (UNSPECIFIED) [Concomitant]
     Indication: OSTEOPOROSIS

REACTIONS (85)
  - Femur fracture [Unknown]
  - Osteoporosis [Unknown]
  - Stress fracture [Unknown]
  - Bone density decreased [Unknown]
  - Femur fracture [Unknown]
  - Cholecystectomy [Unknown]
  - Spinal disorder [Unknown]
  - Open reduction of fracture [Unknown]
  - Intramedullary rod insertion [Unknown]
  - Femur fracture [Unknown]
  - Open reduction of fracture [Unknown]
  - Medical device removal [Unknown]
  - Anxiety [Not Recovered/Not Resolved]
  - Depression [Not Recovered/Not Resolved]
  - Foot fracture [Unknown]
  - Foot fracture [Unknown]
  - Ankle fracture [Unknown]
  - Wrist fracture [Unknown]
  - Fall [Unknown]
  - Asthma [Unknown]
  - Dyspnoea [Unknown]
  - Onychomycosis [Unknown]
  - Acute sinusitis [Unknown]
  - Sciatica [Unknown]
  - Radiculitis lumbosacral [Unknown]
  - Pyelonephritis acute [Unknown]
  - Hyperlipidaemia [Unknown]
  - Cough [Unknown]
  - Myositis [Unknown]
  - Herpes zoster [Unknown]
  - Urinary tract infection [Unknown]
  - Cystitis [Unknown]
  - Anxiety [Not Recovered/Not Resolved]
  - Bronchitis [Unknown]
  - Type 2 diabetes mellitus [Unknown]
  - Seborrhoeic dermatitis [Not Recovered/Not Resolved]
  - Rhinitis allergic [Unknown]
  - Hyperhidrosis [Unknown]
  - Arthropathy [Unknown]
  - Haemangioma [Unknown]
  - Chest pain [Unknown]
  - Influenza [Unknown]
  - Anaemia [Unknown]
  - Hypercalcaemia [Unknown]
  - Restless legs syndrome [Unknown]
  - Vitamin D deficiency [Unknown]
  - Dysuria [Unknown]
  - Rotator cuff syndrome [Unknown]
  - Fracture nonunion [Unknown]
  - Wrist fracture [Unknown]
  - Contusion [Unknown]
  - Hypoaesthesia [Unknown]
  - Paraesthesia [Unknown]
  - Ligament injury [Unknown]
  - Ecchymosis [Unknown]
  - Blister [Recovered/Resolved]
  - Underdose [Unknown]
  - Oedema [Unknown]
  - Fall [Unknown]
  - Irritable bowel syndrome [Unknown]
  - Hepatic cyst [Unknown]
  - Hepatic steatosis [Unknown]
  - Hepatic enzyme increased [Unknown]
  - Haemorrhagic anaemia [Unknown]
  - Foot fracture [Unknown]
  - Fracture delayed union [Unknown]
  - Foot fracture [Unknown]
  - Rib fracture [Unknown]
  - Inappropriate antidiuretic hormone secretion [Unknown]
  - Transaminases increased [Unknown]
  - Hyponatraemia [Unknown]
  - Atrioventricular block first degree [Unknown]
  - Sleep apnoea syndrome [Unknown]
  - Arthritis [Unknown]
  - Insulin resistance [Unknown]
  - Arthropathy [Unknown]
  - Metabolic syndrome [Unknown]
  - Arthralgia [Unknown]
  - Gastritis [Unknown]
  - Pain in extremity [Unknown]
  - Myalgia [Unknown]
  - Gastrooesophageal reflux disease [Unknown]
  - Back pain [Unknown]
  - Arthralgia [Unknown]
  - Oedema peripheral [Unknown]
